FAERS Safety Report 4301822-8 (Version None)
Quarter: 2004Q1

REPORT INFORMATION
  Report Type: 
  Country: None (occurrence: None)
  Receive Date: 20040126
  Receipt Date: 20031003
  Transmission Date: 20041129
  Serious: No
  Sender: FDA-Public Use
  Company Number: USA031048985

PATIENT
  Age: 48 Year
  Sex: Female

DRUGS (2)
  1. STRATTERA [Suspect]
     Dosage: 80 MG/DAY
  2. PAXIL CR [Concomitant]

REACTIONS (4)
  - ANXIETY [None]
  - FEELING JITTERY [None]
  - HYPERHIDROSIS [None]
  - RESTLESS LEGS SYNDROME [None]
